FAERS Safety Report 17821017 (Version 2)
Quarter: 2020Q2

REPORT INFORMATION
  Report Type: Report from Study
  Country: US (occurrence: US)
  Receive Date: 20200525
  Receipt Date: 20200608
  Transmission Date: 20200714
  Serious: Yes (Hospitalization)
  Sender: FDA-Public Use
  Company Number: US-SA-2020SA134824

PATIENT

DRUGS (7)
  1. SARILUMAB [Suspect]
     Active Substance: SARILUMAB
     Indication: COVID-19
     Dosage: REGN88 OR PLACEBO, 200 MG OR 400 MG SINCE OR MULTIPLE DOSES FOR 1 HOUR
     Route: 042
     Dates: start: 20200429, end: 20200429
  2. ACETAMINOFEN [Concomitant]
     Active Substance: ACETAMINOPHEN
     Indication: PYREXIA
     Route: 048
     Dates: start: 20200424
  3. ALBUMIN [Concomitant]
     Active Substance: ALBUMIN HUMAN
     Indication: COVID-19
     Dosage: 5 %, 1X
     Route: 042
     Dates: start: 20200430, end: 20200430
  4. HEPARIN [Concomitant]
     Active Substance: HEPARIN SODIUM
     Indication: COVID-19
     Dosage: 25000 U, CONTINUOUS
     Route: 042
     Dates: start: 20200430
  5. ACETAMINOFEN [Concomitant]
     Active Substance: ACETAMINOPHEN
     Indication: PYREXIA
     Dosage: 1000 MG, PRN
     Route: 048
     Dates: start: 20200424
  6. FUROSEMIDE. [Concomitant]
     Active Substance: FUROSEMIDE
     Indication: COVID-19
     Dosage: 40 MG, BID
     Route: 042
     Dates: start: 20200429
  7. DIAMOX SEQUELS [Concomitant]
     Active Substance: ACETAZOLAMIDE
     Indication: COVID-19
     Dosage: 500 MG, BID
     Route: 042
     Dates: start: 20200430

REACTIONS (1)
  - Klebsiella infection [Unknown]

NARRATIVE: CASE EVENT DATE: 20200507
